FAERS Safety Report 6709870-5 (Version None)
Quarter: 2010Q2

REPORT INFORMATION
  Report Type: 
  Country: None (occurrence: None)
  Receive Date: 20100504
  Receipt Date: 20100423
  Transmission Date: 20101027
  Serious: Yes (Life-Threatening, Hospitalization, Other)
  Sender: FDA-Public Use
  Company Number: DE-BRISTOL-MYERS SQUIBB COMPANY-14535462

PATIENT
  Age: 77 Year
  Sex: Female
  Weight: 95 kg

DRUGS (9)
  1. METFORMIN HCL [Interacting]
     Indication: TYPE 2 DIABETES MELLITUS
     Route: 048
     Dates: start: 19950101
  2. LISINOPRIL [Interacting]
     Indication: HYPERTENSION
     Dosage: FORM = TABS
     Route: 048
     Dates: start: 20030101, end: 20080727
  3. METOPROLOL TARTRATE [Interacting]
     Indication: HYPERTENSION
     Dosage: METOPROLOL PROLONGED-RELEASE TABLETS
     Route: 048
     Dates: start: 19990101
  4. GLIBENCLAMIDE [Interacting]
     Indication: TYPE 2 DIABETES MELLITUS
     Dosage: FORM = TABS
     Route: 048
     Dates: start: 20000101, end: 20080727
  5. FURORESE [Interacting]
     Indication: RENAL IMPAIRMENT
     Dosage: FORM = TABS
     Route: 048
     Dates: start: 20020101, end: 20080808
  6. XIPAMIDE [Suspect]
     Indication: HYPERTENSION
     Dosage: FORM = TABS
     Route: 048
     Dates: start: 20000101
  7. ASPIRIN [Concomitant]
     Indication: ISCHAEMIC HEART DISEASE PROPHYLAXIS
     Dosage: ACETYLSALICYLID ACID; CT-ARZNEIMITTEL CHEMISCHE TEMPELHOF GMBH FORM = TABS
     Route: 048
     Dates: start: 20020101
  8. PANTOZOL [Concomitant]
     Indication: PROPHYLAXIS AGAINST GASTROINTESTINAL ULCER
     Dosage: (PANTOPRAZOLE SODIUM; BYK-GULDEN LOMBERG GMBH) FORM = TABS
     Route: 048
     Dates: start: 20060101
  9. SIMVASTATIN [Concomitant]
     Indication: HYPERLIPIDAEMIA
     Dosage: SIMVASTATIN FILM-COATED TABLETS
     Route: 048
     Dates: start: 20020101

REACTIONS (3)
  - DRUG INTERACTION [None]
  - HYPOGLYCAEMIA [None]
  - RENAL FAILURE ACUTE [None]
